FAERS Safety Report 8954351 (Version 1)
Quarter: 2012Q4

REPORT INFORMATION
  Report Type: 
  Country: NL (occurrence: NL)
  Receive Date: 20121210
  Receipt Date: 20121210
  Transmission Date: 20130627
  Serious: Yes (Other)
  Sender: FDA-Public Use
  Company Number: PHHY2012NL112964

PATIENT
  Sex: Male

DRUGS (3)
  1. ZOMETA [Suspect]
     Indication: LUNG CANCER METASTATIC
     Dosage: UNK UKN, UNK (4 mg/100 ml once per 28 days)
     Route: 042
     Dates: start: 20120221
  2. ZOMETA [Suspect]
     Dosage: UNK UKN, UNK (4 mg/100 ml once per 28 days)
     Route: 042
     Dates: start: 20121016
  3. ZOMETA [Suspect]
     Dosage: UNK UKN, UNK (4 mg/100 ml once per 28 days)
     Route: 042
     Dates: start: 20121113

REACTIONS (3)
  - Terminal state [Unknown]
  - General physical health deterioration [Unknown]
  - Communication disorder [Unknown]
